FAERS Safety Report 9917489 (Version 1)
Quarter: 2014Q1

REPORT INFORMATION
  Report Type: Spontaneous
  Country: US (occurrence: US)
  Receive Date: 20140221
  Receipt Date: 20140221
  Transmission Date: 20141002
  Serious: Yes (Other)
  Sender: FDA-Public Use
  Company Number: US-JHP PHARMACEUTICALS, LLC-JHP201400057

PATIENT
  Sex: Male
  Weight: 97.96 kg

DRUGS (9)
  1. ADRENALIN [Suspect]
  2. BENADRYL [Suspect]
  3. FIRAZYR [Concomitant]
  4. DANAZOL [Concomitant]
  5. KALBITOR [Concomitant]
  6. ALBUTEROL [Concomitant]
     Indication: WHEEZING
  7. ZOFRAN [Concomitant]
  8. KETOROLAC [Concomitant]
  9. PREDNISONE [Concomitant]

REACTIONS (2)
  - Drug ineffective [Unknown]
  - Adverse drug reaction [Unknown]
